FAERS Safety Report 6176758-0 (Version None)
Quarter: 2009Q2

REPORT INFORMATION
  Report Type: 
  Country: None (occurrence: None)
  Receive Date: 20090501
  Receipt Date: 20090428
  Transmission Date: 20091009
  Serious: Yes (Death, Hospitalization)
  Sender: FDA-Public Use
  Company Number: GB-ABBOTT-09P-167-0570514-00

PATIENT
  Age: 79 Year
  Sex: Female

DRUGS (13)
  1. CLARITHROMYCIN [Suspect]
     Indication: BRONCHITIS
     Dates: start: 20081224, end: 20081231
  2. SIMVASTATIN [Interacting]
     Indication: MYOCARDIAL ISCHAEMIA
     Dates: start: 20050501, end: 20090113
  3. WARFARIN SODIUM [Concomitant]
     Indication: ATRIAL FIBRILLATION
     Dates: start: 20080701
  4. WARFARIN SODIUM [Concomitant]
     Dates: start: 20080701
  5. NICORANDIL [Concomitant]
     Indication: DRUG USE FOR UNKNOWN INDICATION
  6. ZOPICLONE [Concomitant]
     Indication: DRUG USE FOR UNKNOWN INDICATION
     Dosage: TAKE ONE OR TWO AT NIGHT
  7. ISOTARD XL [Concomitant]
     Indication: DRUG USE FOR UNKNOWN INDICATION
     Dosage: IN THE MORNING
  8. BISOPROLOL FUMARATE [Concomitant]
     Indication: MYOCARDIAL ISCHAEMIA
  9. RAMIPRIL [Concomitant]
     Indication: MYOCARDIAL ISCHAEMIA
  10. OMEPRAZOLE [Concomitant]
     Indication: DYSPEPSIA
  11. FUROSEMIDE [Concomitant]
     Indication: DRUG USE FOR UNKNOWN INDICATION
     Dosage: TWO EVERY AM
  12. FERROUS SULFATE TAB [Concomitant]
     Indication: ANAEMIA
  13. NITROGLYCERIN [Concomitant]
     Indication: DRUG USE FOR UNKNOWN INDICATION

REACTIONS (5)
  - BLOOD CREATINE PHOSPHOKINASE INCREASED [None]
  - CEREBROVASCULAR ACCIDENT [None]
  - DRUG INTERACTION [None]
  - MYOSITIS [None]
  - SYNCOPE [None]
